FAERS Safety Report 12950146 (Version 2)
Quarter: 2017Q3

REPORT INFORMATION
  Report Type: Spontaneous
  Country: JP (occurrence: JP)
  Receive Date: 20161117
  Receipt Date: 20170721
  Transmission Date: 20171127
  Serious: Yes (Hospitalization)
  Sender: FDA-Public Use
  Company Number: JP-PFIZER INC-2016531752

PATIENT

DRUGS (1)
  1. HALCION [Suspect]
     Active Substance: TRIAZOLAM
     Route: 048

REACTIONS (1)
  - Depressed level of consciousness [Unknown]
